FAERS Safety Report 7759902-0 (Version None)
Quarter: 2011Q3

REPORT INFORMATION
  Report Type: 
  Country: None (occurrence: None)
  Receive Date: 20110919
  Receipt Date: 20110914
  Transmission Date: 20111222
  Serious: Yes (Hospitalization, Other)
  Sender: FDA-Public Use
  Company Number: US-MERCK-0906USA02848

PATIENT
  Age: 81 Year
  Sex: Female
  Weight: 75 kg

DRUGS (5)
  1. FOSAMAX [Suspect]
     Route: 048
     Dates: start: 20020701, end: 20060901
  2. FOSAMAX [Suspect]
     Indication: OSTEOPOROSIS
     Route: 048
     Dates: start: 20060923, end: 20070101
  3. CALCIUM (UNSPECIFIED) [Concomitant]
     Indication: OSTEOPOROSIS
     Route: 065
  4. COD LIVER OIL [Concomitant]
     Route: 065
  5. HYDROCORTISONE ACETATE [Concomitant]
     Indication: RASH
     Route: 065

REACTIONS (25)
  - BONE LOSS [None]
  - BLOOD TRIGLYCERIDES INCREASED [None]
  - DIZZINESS [None]
  - ARTHRALGIA [None]
  - EYE DISORDER [None]
  - ABDOMINAL HERNIA [None]
  - DYSPNOEA [None]
  - BLOOD POTASSIUM INCREASED [None]
  - PERIODONTITIS [None]
  - COUGH [None]
  - OSTEONECROSIS OF JAW [None]
  - INTESTINAL OBSTRUCTION [None]
  - OSTEOMYELITIS [None]
  - CATARACT [None]
  - DIVERTICULUM INTESTINAL [None]
  - DRUG INEFFECTIVE [None]
  - INADEQUATE DIET [None]
  - ANAEMIA [None]
  - INCISION SITE PAIN [None]
  - BLOOD PRESSURE INCREASED [None]
  - SNEEZING [None]
  - ECZEMA [None]
  - GASTROINTESTINAL DISORDER [None]
  - ANXIETY [None]
  - ASTHENIA [None]
